FAERS Safety Report 23285340 (Version 3)
Quarter: 2024Q1

REPORT INFORMATION
  Report Type: Report from Study
  Country: JP (occurrence: None)
  Receive Date: 20231211
  Receipt Date: 20240227
  Transmission Date: 20240410
  Serious: Yes (Hospitalization, Other)
  Sender: FDA-Public Use
  Company Number: 2023A278718

PATIENT
  Age: 79 Year
  Sex: Female

DRUGS (2)
  1. IMFINZI [Suspect]
     Active Substance: DURVALUMAB
     Indication: Hepatocellular carcinoma
     Dosage: DOSE UNKNOWN
     Route: 042
     Dates: start: 20230606, end: 2023
  2. IMJUDO [Suspect]
     Active Substance: TREMELIMUMAB\TREMELIMUMAB-ACTL
     Indication: Hepatocellular carcinoma
     Dosage: DOSE UNKNOWN
     Route: 042
     Dates: start: 20230606, end: 20230606

REACTIONS (6)
  - Pancreatitis acute [Unknown]
  - Blood pressure decreased [Recovering/Resolving]
  - Infection [Unknown]
  - Fulminant type 1 diabetes mellitus [Unknown]
  - Cytokine release syndrome [Recovering/Resolving]
  - Interleukin level increased [Recovering/Resolving]

NARRATIVE: CASE EVENT DATE: 20230704
